FAERS Safety Report 10164844 (Version 1)
Quarter: 2014Q2

REPORT INFORMATION
  Report Type: Spontaneous
  Country: US (occurrence: US)
  Receive Date: 20140510
  Receipt Date: 20140510
  Transmission Date: 20141212
  Serious: No
  Sender: FDA-Public Use
  Company Number: US-BRISTOL-MYERS SQUIBB COMPANY-20473021

PATIENT
  Age: 66 Year
  Sex: Female
  Weight: 109.29 kg

DRUGS (5)
  1. BYETTA PEN DISPOSABLE [Suspect]
     Indication: TYPE 2 DIABETES MELLITUS
     Dates: start: 20140305
  2. PREDNISONE [Concomitant]
  3. GLIPIZIDE [Concomitant]
  4. JANUVIA [Concomitant]
  5. METFORMIN [Concomitant]

REACTIONS (2)
  - Expired product administered [Unknown]
  - Drug ineffective [Unknown]
